FAERS Safety Report 20237856 (Version 1)
Quarter: 2021Q4

REPORT INFORMATION
  Report Type: Spontaneous
  Country: US (occurrence: None)
  Receive Date: 20211227
  Receipt Date: 20211227
  Transmission Date: 20220303
  Serious: No
  Sender: FDA-Public Use
  Company Number: None

PATIENT
  Age: 53 Year
  Sex: Male
  Weight: 188 kg

DRUGS (2)
  1. CASIRIVIMAB [Suspect]
     Active Substance: CASIRIVIMAB
     Indication: COVID-19
     Dosage: FREQUENCY : ONCE;?
     Route: 042
     Dates: start: 20211222, end: 20211222
  2. IMDEVIMAB [Suspect]
     Active Substance: IMDEVIMAB

REACTIONS (5)
  - Nausea [None]
  - Vomiting [None]
  - Dyspnoea [None]
  - Chest discomfort [None]
  - Hyperhidrosis [None]

NARRATIVE: CASE EVENT DATE: 20211222
